FAERS Safety Report 4341830-4 (Version None)
Quarter: 2004Q2

REPORT INFORMATION
  Report Type: 
  Country: None (occurrence: None)
  Receive Date: 20040416
  Receipt Date: 20040405
  Transmission Date: 20050107
  Serious: Yes (Hospitalization)
  Sender: FDA-Public Use
  Company Number: 202824

PATIENT
  Age: 56 Year
  Sex: Female

DRUGS (8)
  1. HERCEPTIN [Suspect]
     Indication: BREAST CANCER
     Dosage: 4 MG/KG, SINGLE, INTRAVENOUS; 193 MG, 1/WEEK/, INTRAVENOUS
     Route: 042
     Dates: start: 20030826, end: 20030826
  2. HERCEPTIN [Suspect]
     Indication: BREAST CANCER
     Dosage: 4 MG/KG, SINGLE, INTRAVENOUS; 193 MG, 1/WEEK/, INTRAVENOUS
     Route: 042
     Dates: start: 20030101
  3. DOCETAXEL(DOCETAXEL) [Suspect]
     Indication: BREAST CANCER
     Dosage: 196 MG, Q3W, INTRAVENOUS
     Route: 042
     Dates: start: 20030917
  4. LEXAPRO [Concomitant]
  5. BUDESONIDE (BUDESONIDE) [Concomitant]
  6. CELEBREX [Concomitant]
  7. COMPAZINE [Concomitant]
  8. DEXAMETHASONE [Concomitant]

REACTIONS (6)
  - CELLULITIS [None]
  - MALAISE [None]
  - NEUTROPENIC INFECTION [None]
  - PHARYNGITIS [None]
  - PYREXIA [None]
  - STOMATITIS [None]
